FAERS Safety Report 25811801 (Version 1)
Quarter: 2025Q3

REPORT INFORMATION
  Report Type: Spontaneous
  Country: US (occurrence: None)
  Receive Date: 20250916
  Receipt Date: 20250916
  Transmission Date: 20251020
  Serious: Yes (Death)
  Sender: FDA-CTU
  Company Number: None

PATIENT
  Age: 68 Year
  Sex: Female

DRUGS (1)
  1. OPSUMIT [Suspect]
     Active Substance: MACITENTAN
     Indication: Pulmonary hypertension
     Dosage: 10 MG QD ORAL
     Route: 048
     Dates: start: 20250617, end: 20250913

REACTIONS (3)
  - Abdominal pain [None]
  - Ventricular tachycardia [None]
  - Cardiac arrest [None]

NARRATIVE: CASE EVENT DATE: 20250913
